FAERS Safety Report 9448267 (Version 1)
Quarter: 2013Q3

REPORT INFORMATION
  Report Type: Spontaneous
  Country: DE (occurrence: DE)
  Receive Date: 20130808
  Receipt Date: 20130808
  Transmission Date: 20140515
  Serious: Yes (Other)
  Sender: FDA-Public Use
  Company Number: DE-PFIZER INC-2013227269

PATIENT
  Age: 31 Year
  Sex: Female

DRUGS (1)
  1. UNACID [Suspect]
     Indication: ABSCESS
     Dosage: 3 G, 3X/DAY
     Route: 042
     Dates: start: 20130426, end: 20130428

REACTIONS (3)
  - Epidermolysis [Recovered/Resolved]
  - Blood creatinine increased [Unknown]
  - C-reactive protein increased [Unknown]
